FAERS Safety Report 7531024 (Version 3)
Quarter: 2015Q1

REPORT INFORMATION
  Report Type: Spontaneous
  Country: FR (occurrence: FR)
  Receive Date: 20100806
  Receipt Date: 20150324
  Transmission Date: 20150721
  Serious: Yes (Hospitalization)
  Sender: FDA-Public Use
  Company Number: PHHY2010FR49786

PATIENT
  Age: 2 Year
  Sex: Female

DRUGS (5)
  1. EXJADE [Suspect]
     Active Substance: DEFERASIROX
     Indication: CONGENITAL APLASTIC ANAEMIA
     Dosage: 125 MG, QD
     Route: 065
     Dates: start: 20091208
  2. EXJADE [Suspect]
     Active Substance: DEFERASIROX
     Dosage: UNK
     Route: 065
     Dates: end: 20150207
  3. EXJADE [Suspect]
     Active Substance: DEFERASIROX
     Dosage: 125 MG, BID
     Route: 065
     Dates: start: 201001
  4. EXJADE [Suspect]
     Active Substance: DEFERASIROX
     Dosage: 125 MG, TID
     Route: 065
     Dates: end: 20100713
  5. EXJADE [Suspect]
     Active Substance: DEFERASIROX
     Dosage: UNK
     Route: 065
     Dates: start: 20100917, end: 201412

REACTIONS (1)
  - Hepatocellular injury [Not Recovered/Not Resolved]

NARRATIVE: CASE EVENT DATE: 201005
